FAERS Safety Report 6243452-7 (Version None)
Quarter: 2009Q2

REPORT INFORMATION
  Report Type: 
  Country: None (occurrence: None)
  Receive Date: 20090624
  Receipt Date: 20090612
  Transmission Date: 20091009
  Serious: Yes (Other)
  Sender: FDA-Public Use
  Company Number: US-AVENTIS-200915241US

PATIENT
  Sex: Female

DRUGS (4)
  1. LANTUS [Suspect]
     Dosage: DOSE: UNK
     Route: 058
  2. OPTICLIK (INSULIN INJECTION PEN) [Suspect]
  3. APIDRA [Suspect]
     Dosage: FREQUENCY: AFTER MEALS
     Route: 058
     Dates: start: 20080101
  4. OPTICLIK GREY [Suspect]
     Dates: start: 20080101

REACTIONS (7)
  - CATARACT [None]
  - DIABETES MELLITUS INADEQUATE CONTROL [None]
  - DIABETIC RETINOPATHY [None]
  - DRUG INEFFECTIVE [None]
  - EYE SWELLING [None]
  - RETINAL HAEMORRHAGE [None]
  - VISUAL IMPAIRMENT [None]
